FAERS Safety Report 9939051 (Version 1)
Quarter: 2014Q1

REPORT INFORMATION
  Report Type: Spontaneous
  Country: US (occurrence: US)
  Receive Date: 20140303
  Receipt Date: 20140303
  Transmission Date: 20141002
  Serious: No
  Sender: FDA-Public Use
  Company Number: US-ABBVIE-13P-163-1038316-00

PATIENT
  Age: 61 Year
  Sex: Male

DRUGS (1)
  1. HUMIRA [Suspect]
     Indication: COLITIS ULCERATIVE
     Dosage: 160 MG LOADING DOSE
     Dates: start: 20130116

REACTIONS (1)
  - Injection site pain [Recovered/Resolved]
